FAERS Safety Report 19890091 (Version 1)
Quarter: 2021Q3

REPORT INFORMATION
  Report Type: Spontaneous
  Country: DE (occurrence: DE)
  Receive Date: 20210928
  Receipt Date: 20210928
  Transmission Date: 20211014
  Serious: Yes (Other)
  Sender: FDA-Public Use
  Company Number: DE-MYLANLABS-2021M1065728

PATIENT
  Age: 1 Day
  Sex: Female
  Weight: 3.42 kg

DRUGS (5)
  1. QUETIAPINE. [Suspect]
     Active Substance: QUETIAPINE
     Indication: BIPOLAR DISORDER
     Dosage: 50 MILLIGRAM, QD
     Route: 064
     Dates: start: 20191021, end: 20200725
  2. FOLIC ACID. [Concomitant]
     Active Substance: FOLIC ACID
     Indication: PROPHYLAXIS OF NEURAL TUBE DEFECT
     Dosage: UNK
     Route: 064
     Dates: start: 20191021, end: 20200725
  3. HYPNOREX [Suspect]
     Active Substance: LITHIUM CARBONATE
     Indication: BIPOLAR DISORDER
     Dosage: 800 MILLIGRAM, QD
     Route: 064
     Dates: start: 20191021, end: 20200725
  4. CLOMIFENE [Concomitant]
     Active Substance: CLOMIPHENE
     Indication: INFERTILITY FEMALE
     Route: 064
  5. TETANUS TOXOID ADSORBED (VACCINE) [Concomitant]
     Active Substance: CLOSTRIDIUM TETANI TOXOID ANTIGEN (FORMALDEHYDE INACTIVATED)
     Indication: IMMUNISATION
     Dosage: UNK
     Route: 064

REACTIONS (7)
  - Blood lactate dehydrogenase increased [Recovering/Resolving]
  - Respiratory disorder neonatal [Recovered/Resolved]
  - Bradycardia neonatal [Recovered/Resolved]
  - Atrial septal defect [Unknown]
  - Foetal exposure during pregnancy [Recovered/Resolved]
  - Hypoglycaemia neonatal [Recovered/Resolved]
  - Hepatic enzyme increased [Recovered/Resolved]

NARRATIVE: CASE EVENT DATE: 20200725
